FAERS Safety Report 5134421-9 (Version None)
Quarter: 2006Q4

REPORT INFORMATION
  Report Type: 
  Country: None (occurrence: None)
  Receive Date: 20061019
  Receipt Date: 20061003
  Transmission Date: 20070319
  Serious: Yes (Death)
  Sender: FDA-Public Use
  Company Number: S06-USA-04305-01

PATIENT
  Age: 31 Year
  Sex: Female

DRUGS (6)
  1. CELEXA [Suspect]
     Indication: ANXIETY
     Dosage: 40 MG QD PO
     Route: 048
     Dates: start: 20010721, end: 20010906
  2. CELEXA [Suspect]
     Indication: DEPRESSION
     Dosage: 40 MG QD PO
     Route: 048
     Dates: start: 20010721, end: 20010906
  3. CELEXA [Suspect]
     Indication: ANXIETY
     Dosage: 10 MG QD PO
     Route: 048
     Dates: start: 20000918
  4. CELEXA [Suspect]
     Indication: DEPRESSION
     Dosage: 10 MG QD PO
     Route: 048
     Dates: start: 20000918
  5. CELEXA [Suspect]
     Indication: ANXIETY
     Dosage: 20 MG QD PO
     Route: 048
     Dates: end: 20010720
  6. CELEXA [Suspect]
     Indication: DEPRESSION
     Dosage: 20 MG QD PO
     Route: 048
     Dates: end: 20010720

REACTIONS (11)
  - AGITATION [None]
  - ANTIDEPRESSANT DRUG LEVEL INCREASED [None]
  - COMPLETED SUICIDE [None]
  - CONDITION AGGRAVATED [None]
  - DEPRESSION [None]
  - GUN SHOT WOUND [None]
  - IRRITABILITY [None]
  - PHARMACEUTICAL PRODUCT COMPLAINT [None]
  - POSTOPERATIVE INFECTION [None]
  - SELF-INJURIOUS IDEATION [None]
  - SUICIDAL IDEATION [None]
